FAERS Safety Report 9249809 (Version 1)
Quarter: 2013Q2

REPORT INFORMATION
  Report Type: Spontaneous
  Country: IN (occurrence: IN)
  Receive Date: 20130423
  Receipt Date: 20130423
  Transmission Date: 20140414
  Serious: Yes (Death, Other)
  Sender: FDA-Public Use
  Company Number: IN-BAXTER-2013BAX015176

PATIENT
  Age: 62 Year
  Sex: Male

DRUGS (2)
  1. CIPROFLOXACIN INJECTION IP [Suspect]
     Indication: HYPOTHALAMO-PITUITARY DISORDER
     Route: 042
  2. CEFTAZIDIME [Suspect]
     Indication: HYPOTHALAMO-PITUITARY DISORDER
     Route: 042

REACTIONS (2)
  - Death [Fatal]
  - Status epilepticus [Unknown]
